FAERS Safety Report 4375882-2 (Version None)
Quarter: 2004Q2

REPORT INFORMATION
  Report Type: 
  Country: None (occurrence: None)
  Receive Date: 20040609
  Receipt Date: 20040609
  Transmission Date: 20050107
  Serious: Yes (Hospitalization)
  Sender: FDA-Public Use
  Company Number: None

PATIENT
  Sex: Male
  Weight: 74 kg

DRUGS (4)
  1. ZOMETA [Suspect]
     Indication: PROSTATE CANCER
     Dosage: 4 MG
     Dates: start: 20031028
  2. LUPRON [Suspect]
     Dosage: 28.5 MG
     Dates: start: 20031031
  3. LUPRON [Suspect]
     Dosage: 28.5 MG
     Dates: start: 20040115
  4. LUPRON [Suspect]
     Dosage: 28.5 MG
     Dates: start: 20040412

REACTIONS (6)
  - BACK PAIN [None]
  - MALIGNANT NEOPLASM PROGRESSION [None]
  - NAUSEA [None]
  - PROSTATIC SPECIFIC ANTIGEN INCREASED [None]
  - URINARY RETENTION [None]
  - VOMITING [None]
